FAERS Safety Report 10779632 (Version 1)
Quarter: 2015Q1

REPORT INFORMATION
  Report Type: Spontaneous
  Country: US (occurrence: None)
  Receive Date: 20150210
  Receipt Date: 20150210
  Transmission Date: 20150721
  Serious: Yes (Death)
  Sender: FDA-Public Use
  Company Number: None

PATIENT
  Age: 81 Year
  Sex: Female
  Weight: 43.2 kg

DRUGS (1)
  1. PRACTI-PRODUCTS [Suspect]
     Active Substance: UNSPECIFIED INGREDIENT
     Indication: DEHYDRATION
     Route: 042
     Dates: start: 20141106

REACTIONS (3)
  - Infusion related reaction [None]
  - Wrong drug administered [None]
  - Product quality issue [None]

NARRATIVE: CASE EVENT DATE: 20141106
